FAERS Safety Report 19468701 (Version 3)
Quarter: 2021Q3

REPORT INFORMATION
  Report Type: Report from Study
  Country: US (occurrence: US)
  Receive Date: 20210628
  Receipt Date: 20210921
  Transmission Date: 20211014
  Serious: Yes (Other)
  Sender: FDA-Public Use
  Company Number: US-HRARD-2021000072

PATIENT
  Age: 23 Year
  Sex: Female

DRUGS (9)
  1. LYSODREN [Suspect]
     Active Substance: MITOTANE
     Dosage: 1000 MG IN THE MORNING, 1000 MG IN AFTERNOON AND 1000 MG BEFORE BEDTIME
     Route: 048
  2. LYSODREN [Suspect]
     Active Substance: MITOTANE
     Route: 048
  3. LYSODREN [Suspect]
     Active Substance: MITOTANE
     Dosage: 10 TABLETS DAILY (3 TABLETS IN THE MORNING, 3 TABLETS IN AFTERNOON AND 4 TABLETS AT BEDTIME).
     Route: 048
  4. LYSODREN [Suspect]
     Active Substance: MITOTANE
     Dosage: 02 TABLETS IN THE MORNING, 1 TABLET AT NOON, AND 02 TABLETS IN THE AFTERNOON.
     Route: 048
     Dates: start: 20210128, end: 20210203
  5. LYSODREN [Suspect]
     Active Substance: MITOTANE
     Dosage: 01 TABLET BID
     Route: 048
     Dates: start: 20210114, end: 20210120
  6. LYSODREN [Suspect]
     Active Substance: MITOTANE
     Dosage: 02 TABLETS BID
     Route: 048
     Dates: start: 20210121, end: 20210127
  7. LYSODREN [Suspect]
     Active Substance: MITOTANE
     Dosage: 02 TABLETS TID
     Route: 048
     Dates: start: 20210204, end: 20210210
  8. LYSODREN [Suspect]
     Active Substance: MITOTANE
     Route: 048
  9. LYSODREN [Suspect]
     Active Substance: MITOTANE
     Route: 048

REACTIONS (7)
  - Nausea [Not Recovered/Not Resolved]
  - Product dose omission issue [Not Recovered/Not Resolved]
  - Dehydration [Unknown]
  - Abdominal discomfort [Unknown]
  - Diarrhoea [Not Recovered/Not Resolved]
  - Headache [Not Recovered/Not Resolved]
  - Fatigue [Not Recovered/Not Resolved]

NARRATIVE: CASE EVENT DATE: 2021
